FAERS Safety Report 6969382-0 (Version None)
Quarter: 2010Q3

REPORT INFORMATION
  Report Type: 
  Country: None (occurrence: None)
  Receive Date: 20100902
  Receipt Date: 20100818
  Transmission Date: 20110219
  Serious: Yes (Other)
  Sender: FDA-Public Use
  Company Number: 1000015874

PATIENT
  Age: 49 Year
  Sex: Male

DRUGS (3)
  1. CELEXA [Suspect]
     Dosage: ORAL
     Route: 048
  2. LIDOCAINE [Suspect]
  3. ZYTRAM XL (TABLETS) [Suspect]
     Dosage: 1 DOSAGE FORMS (1 DOSAGE FORMS, 1 IN 1 D), ORAL
     Route: 048

REACTIONS (2)
  - CONVULSION [None]
  - IMPAIRED DRIVING ABILITY [None]
